FAERS Safety Report 7315261-9 (Version None)
Quarter: 2011Q1

REPORT INFORMATION
  Report Type: 
  Country: None (occurrence: None)
  Receive Date: 20110218
  Receipt Date: 20110218
  Transmission Date: 20110831
  Serious: Yes (Other)
  Sender: FDA-Public Use
  Company Number: None

PATIENT
  Sex: Male
  Weight: 102.7 kg

DRUGS (2)
  1. TEGRETOL [Suspect]
     Indication: TRAUMATIC BRAIN INJURY
     Dosage: TREGATOL 200MG 1/2 QAM, QPM ORAL
     Route: 048
     Dates: start: 20030101
  2. TEGRETOL [Suspect]
     Indication: CONVULSION
     Dosage: TREGATOL 200MG 1/2 QAM, QPM ORAL
     Route: 048
     Dates: start: 20030101

REACTIONS (4)
  - TREMOR [None]
  - GASTROINTESTINAL DISORDER [None]
  - PRODUCT SUBSTITUTION ISSUE [None]
  - ANGER [None]
